FAERS Safety Report 6158378-7 (Version None)
Quarter: 2009Q2

REPORT INFORMATION
  Report Type: 
  Country: None (occurrence: None)
  Receive Date: 20090417
  Receipt Date: 20090414
  Transmission Date: 20091009
  Serious: Yes (Other)
  Sender: FDA-Public Use
  Company Number: US-ASTRAZENECA-2008UW09536

PATIENT
  Age: 52 Year
  Sex: Male
  Weight: 79.4 kg

DRUGS (5)
  1. ENTOCORT EC [Suspect]
     Indication: CROHN'S DISEASE
     Route: 048
     Dates: start: 20050101
  2. ENTOCORT EC [Suspect]
     Route: 048
  3. LEXAPRO [Concomitant]
  4. VYTORIN [Concomitant]
     Indication: BLOOD CHOLESTEROL INCREASED
     Route: 048
  5. CYMBALTA [Concomitant]
     Route: 048

REACTIONS (6)
  - ANXIETY [None]
  - ARTHRALGIA [None]
  - CATARACT [None]
  - CONTUSION [None]
  - DEPRESSION [None]
  - PRURITUS [None]
